FAERS Safety Report 25813213 (Version 1)
Quarter: 2025Q3

REPORT INFORMATION
  Report Type: Spontaneous
  Country: CA (occurrence: CA)
  Receive Date: 20250917
  Receipt Date: 20250917
  Transmission Date: 20251021
  Serious: Yes (Other)
  Sender: PFIZER
  Company Number: CA-PFIZER INC-PV202500111731

PATIENT
  Age: 53 Year
  Sex: Female

DRUGS (1)
  1. RUXIENCE [Suspect]
     Active Substance: RITUXIMAB-PVVR
     Route: 042

REACTIONS (4)
  - Throat irritation [Recovering/Resolving]
  - Ear pruritus [Recovered/Resolved]
  - Throat tightness [Recovering/Resolving]
  - Blood pressure increased [Recovering/Resolving]
